FAERS Safety Report 8908720 (Version 1)
Quarter: 2012Q4

REPORT INFORMATION
  Report Type: Report from Study
  Country: GB (occurrence: GB)
  Receive Date: 20121114
  Receipt Date: 20121114
  Transmission Date: 20130627
  Serious: Yes (Hospitalization)
  Sender: FDA-Public Use
  Company Number: GB-ASTRAZENECA-2012SE84406

PATIENT
  Age: 22148 Day
  Sex: Female
  Weight: 74.9 kg

DRUGS (11)
  1. VANDETANIB [Suspect]
     Indication: TRANSITIONAL CELL CARCINOMA
     Route: 048
     Dates: start: 20120925, end: 20121023
  2. GEMCITABINE [Suspect]
     Indication: TRANSITIONAL CELL CARCINOMA
     Route: 042
     Dates: start: 20120925, end: 20121017
  3. MST [Concomitant]
     Indication: PAIN
     Route: 048
     Dates: start: 20120925
  4. MAXOLON [Concomitant]
     Indication: NAUSEA
     Route: 048
     Dates: start: 20120923
  5. CREON [Concomitant]
     Indication: PANCREATIC ENZYMES DECREASED
     Route: 048
     Dates: start: 20120920
  6. LANSOPRAZOLE [Concomitant]
     Indication: GASTRIC PH DECREASED
     Route: 048
     Dates: start: 20120623
  7. LOPERAMIDE [Concomitant]
     Indication: DIARRHOEA
     Route: 048
     Dates: start: 20121004
  8. FLUCLOXACILLIN [Concomitant]
     Indication: CELLULITIS
     Route: 048
     Dates: start: 20121020, end: 20121024
  9. FUROSEMIDE [Concomitant]
     Indication: OEDEMA
     Route: 048
     Dates: start: 20121023
  10. AUGMENTIN [Concomitant]
     Indication: CELLULITIS
     Route: 048
     Dates: start: 20121025
  11. DALTEPARIN [Concomitant]
     Indication: THROMBOSIS PROPHYLAXIS
     Route: 058
     Dates: start: 20121025

REACTIONS (1)
  - Cellulitis [Not Recovered/Not Resolved]
